FAERS Safety Report 7493206-9 (Version None)
Quarter: 2011Q2

REPORT INFORMATION
  Report Type: 
  Country: None (occurrence: None)
  Receive Date: 20110520
  Receipt Date: 20101227
  Transmission Date: 20111010
  Serious: Yes (Hospitalization, Disabling, Other)
  Sender: FDA-Public Use
  Company Number: US-BAYER-201021275NA

PATIENT
  Age: 15 Year
  Sex: Female
  Weight: 59.091 kg

DRUGS (21)
  1. CARBONYL IRON [IRON PENTACARBONYL] [Concomitant]
     Route: 048
  2. MAGNESIUM SULFATE [Concomitant]
     Route: 042
  3. HYOSCYAMINE [Concomitant]
  4. IBUPROFEN [Concomitant]
     Route: 065
  5. CODEINE SULFATE [Concomitant]
     Route: 065
  6. MIRALAX [Concomitant]
     Route: 065
  7. LIBRAX [Concomitant]
     Indication: IRRITABLE BOWEL SYNDROME
     Dosage: UNK UNK, TID
     Route: 065
     Dates: start: 20090101, end: 20100101
  8. HYDROMORPHONE HCL [Concomitant]
     Dosage: 24 MG (DAILY DOSE), Q4HR, INTRAVENOUS
     Route: 042
  9. PANTOPRAZOLE [Concomitant]
     Route: 065
  10. YAZ [Suspect]
     Route: 048
     Dates: start: 20071001, end: 20080301
  11. GABAPENTIN [Concomitant]
     Indication: PAIN
     Route: 065
     Dates: start: 20090101
  12. OXYCODONE HCL [Concomitant]
     Indication: PAIN
     Dosage: AS NEEDED, 10 MG PER MOUTH.
     Route: 048
  13. ENOXAPARIN [Concomitant]
     Dosage: 60 MG/0.6 ML SOLUTION)=
     Route: 058
  14. ACETAMINOPHEN [Concomitant]
     Route: 065
  15. YASMIN [Suspect]
     Route: 048
     Dates: start: 20071201, end: 20080101
  16. FERROUS SULFATE TAB [Concomitant]
     Dosage: 50 MG (DAILY DOSE), QD, UNKNOWN
     Route: 065
     Dates: start: 20080101
  17. ACETAMINOPHEN W/ CODEINE [Concomitant]
     Route: 065
  18. FERROUS SULFATE TAB [Concomitant]
  19. MOTRIN [Concomitant]
     Route: 042
  20. SENNA-MINT WAF [Concomitant]
     Route: 065
  21. BENADRYL [Concomitant]

REACTIONS (6)
  - MIGRAINE [None]
  - ABASIA [None]
  - PAIN IN EXTREMITY [None]
  - POST THROMBOTIC SYNDROME [None]
  - DEEP VEIN THROMBOSIS [None]
  - OEDEMA PERIPHERAL [None]
